FAERS Safety Report 7973642-4 (Version None)
Quarter: 2011Q4

REPORT INFORMATION
  Report Type: 
  Country: None (occurrence: None)
  Receive Date: 20111213
  Receipt Date: 20111208
  Transmission Date: 20120403
  Serious: Yes (Hospitalization)
  Sender: FDA-Public Use
  Company Number: FR-ROCHE-720018

PATIENT
  Sex: Male
  Weight: 67.5 kg

DRUGS (3)
  1. EVEROLIMUS [Suspect]
     Indication: RENAL TRANSPLANT
     Dosage: 13 TIMES A DAY
     Route: 002
  2. MYCOPHENOLATE MOFETIL (CELLCEPT) [Suspect]
     Indication: RENAL TRANSPLANT
     Dosage: TDD: 2000 MG
     Route: 002
  3. PREDNISONE TAB [Suspect]
     Indication: RENAL TRANSPLANT
     Route: 002

REACTIONS (3)
  - FLUID RETENTION [None]
  - OEDEMA [None]
  - OEDEMA PERIPHERAL [None]
